FAERS Safety Report 20728293 (Version 2)
Quarter: 2022Q2

REPORT INFORMATION
  Report Type: Spontaneous
  Country: JP (occurrence: JP)
  Receive Date: 20220420
  Receipt Date: 20220426
  Transmission Date: 20220721
  Serious: Yes (Hospitalization)
  Sender: FDA-Public Use
  Company Number: JP-JNJFOC-20220436344

PATIENT
  Age: 5 Decade
  Sex: Female

DRUGS (1)
  1. ONEDURO [Suspect]
     Active Substance: FENTANYL
     Indication: Cancer pain
     Dosage: DOSE UNKNOWN
     Route: 062

REACTIONS (1)
  - Hospitalisation [Recovered/Resolved]
